FAERS Safety Report 8442896-2 (Version None)
Quarter: 2012Q2

REPORT INFORMATION
  Report Type: 
  Country: None (occurrence: None)
  Receive Date: 20120323
  Receipt Date: 20110608
  Transmission Date: 20120825
  Serious: Yes (Other)
  Sender: FDA-Public Use
  Company Number: 163-21880-11061511

PATIENT
  Age: 71 Year
  Sex: Male

DRUGS (5)
  1. LIPITOR [Concomitant]
  2. ATENOLOL [Concomitant]
  3. REVLIMID [Suspect]
     Indication: MULTIPLE MYELOMA
     Dosage: 10 MG, 21 DAYS, PO
     Route: 048
     Dates: start: 20110520
  4. DEXAMETHASONE [Concomitant]
  5. ASPIRIN [Concomitant]

REACTIONS (2)
  - FATIGUE [None]
  - ATRIAL FIBRILLATION [None]
